FAERS Safety Report 12058039 (Version 1)
Quarter: 2016Q1

REPORT INFORMATION
  Report Type: Report from Study
  Country: US (occurrence: US)
  Receive Date: 20160209
  Receipt Date: 20160209
  Transmission Date: 20160526
  Serious: No
  Sender: FDA-Public Use
  Company Number: US-ABBVIE-15P-163-1493386-00

PATIENT
  Age: 61 Year
  Sex: Female

DRUGS (15)
  1. HUMIRA [Suspect]
     Active Substance: ADALIMUMAB
     Indication: PSORIATIC ARTHROPATHY
     Route: 058
  2. FOLIC ACID. [Concomitant]
     Active Substance: FOLIC ACID
     Indication: PSORIATIC ARTHROPATHY
  3. CALCIUM [Concomitant]
     Active Substance: CALCIUM
     Indication: PSORIATIC ARTHROPATHY
  4. METHOTREXATE SODIUM. [Concomitant]
     Active Substance: METHOTREXATE SODIUM
     Indication: PSORIATIC ARTHROPATHY
  5. VITAMIN D [Concomitant]
     Active Substance: CHOLECALCIFEROL
     Indication: PSORIATIC ARTHROPATHY
  6. COLACE [Concomitant]
     Active Substance: DOCUSATE SODIUM
     Indication: PSORIATIC ARTHROPATHY
  7. ASPIRIN 81 [Concomitant]
     Active Substance: ASPIRIN
     Indication: PSORIATIC ARTHROPATHY
  8. LYSINE [Concomitant]
     Active Substance: LYSINE
     Indication: PSORIATIC ARTHROPATHY
  9. LORAZEPAM. [Concomitant]
     Active Substance: LORAZEPAM
     Indication: PSORIATIC ARTHROPATHY
  10. VITAMIN B6 [Concomitant]
     Active Substance: PYRIDOXINE HYDROCHLORIDE
     Indication: PSORIATIC ARTHROPATHY
  11. ZYRTEC [Concomitant]
     Active Substance: CETIRIZINE HYDROCHLORIDE
     Indication: PSORIATIC ARTHROPATHY
  12. CITALOPRAM HYDROBROMIDE. [Concomitant]
     Active Substance: CITALOPRAM HYDROBROMIDE
     Indication: PSORIATIC ARTHROPATHY
  13. GLUCOSAMINE/CHONDROITIN [Concomitant]
     Indication: PSORIATIC ARTHROPATHY
  14. ATORVASTATIN CALCIUM. [Concomitant]
     Active Substance: ATORVASTATIN CALCIUM
     Indication: PSORIATIC ARTHROPATHY
  15. ZOMIG [Concomitant]
     Active Substance: ZOLMITRIPTAN
     Indication: PSORIATIC ARTHROPATHY

REACTIONS (1)
  - Insomnia [Unknown]
